FAERS Safety Report 8150000-3 (Version None)
Quarter: 2012Q1

REPORT INFORMATION
  Report Type: 
  Country: None (occurrence: None)
  Receive Date: 20120218
  Receipt Date: 20120104
  Transmission Date: 20120608
  Serious: No
  Sender: FDA-Public Use
  Company Number: US-ALLERGAN-1116984US

PATIENT
  Age: 46 Year
  Sex: Female

DRUGS (2)
  1. BOTOX COSMETIC [Suspect]
     Indication: SKIN WRINKLING
     Dosage: 40 UNITS, SINGLE
     Route: 030
     Dates: start: 20110826
  2. BOTOX COSMETIC [Suspect]
     Dosage: UNK
     Route: 030

REACTIONS (1)
  - THERAPEUTIC RESPONSE DECREASED [None]
